FAERS Safety Report 10190964 (Version 1)
Quarter: 2014Q2

REPORT INFORMATION
  Report Type: Spontaneous
  Country: US (occurrence: None)
  Receive Date: 20140521
  Receipt Date: 20140521
  Transmission Date: 20141212
  Serious: Yes (Life-Threatening)
  Sender: FDA-Public Use
  Company Number: None

PATIENT
  Age: 73 Year
  Sex: Female
  Weight: 59.88 kg

DRUGS (9)
  1. PACLITAXEL 100MG HOSPIRA [Suspect]
     Indication: CHEMOTHERAPY
     Dosage: 230MG PER CHEMO REGIMEN INTRAVENOUS
     Route: 042
  2. PACLITAXEL 100MG HOSPIRA [Suspect]
     Dosage: 230MG PER CHEMO REGIMEN INTRAVENOUS
     Route: 042
  3. PACLITAXEL 30MG HOSPIRA [Suspect]
     Indication: CHEMOTHERAPY
     Route: 042
  4. DEXAMETHASONE [Concomitant]
  5. PEPCID [Concomitant]
  6. DIPHENHYDRAMINE [Concomitant]
  7. DEXTROSE [Concomitant]
  8. NS [Concomitant]
  9. GRANISETRON [Concomitant]

REACTIONS (7)
  - Unresponsive to stimuli [None]
  - Confusional state [None]
  - Infusion related reaction [None]
  - Pulse absent [None]
  - Respiratory arrest [None]
  - Infusion related reaction [None]
  - Dysgeusia [None]
